FAERS Safety Report 20921039 (Version 1)
Quarter: 2022Q2

REPORT INFORMATION
  Report Type: Spontaneous
  Country: US (occurrence: US)
  Receive Date: 20220606
  Receipt Date: 20220606
  Transmission Date: 20220721
  Serious: No
  Sender: FDA-Public Use
  Company Number: US-RIGEL PHARMACEUTICALS, INC.-2022FOS000146

PATIENT
  Sex: Female
  Weight: 72.562 kg

DRUGS (2)
  1. TAVALISSE [Suspect]
     Active Substance: FOSTAMATINIB
     Indication: Immune thrombocytopenia
     Dosage: 100 MG, BID
     Route: 048
     Dates: start: 20200623
  2. TAVALISSE [Suspect]
     Active Substance: FOSTAMATINIB
     Indication: Polyneuropathy

REACTIONS (1)
  - Diarrhoea [Unknown]
